FAERS Safety Report 8212400-2 (Version None)
Quarter: 2012Q1

REPORT INFORMATION
  Report Type: 
  Country: None (occurrence: None)
  Receive Date: 20120315
  Receipt Date: 20120307
  Transmission Date: 20120608
  Serious: Yes (Other)
  Sender: FDA-Public Use
  Company Number: US-MPIJNJ-2012-01706

PATIENT
  Age: 19 Year
  Sex: Male

DRUGS (2)
  1. RITUXIMAB [Concomitant]
     Indication: TRANSPLANT REJECTION
     Dosage: 375 MG/M2, UNK
  2. VELCADE [Suspect]
     Indication: TRANSPLANT REJECTION
     Dosage: 1.3 MG/M2, CYCLIC
     Route: 065

REACTIONS (2)
  - THROMBOCYTOPENIA [None]
  - CLOSTRIDIUM DIFFICILE COLITIS [None]
